FAERS Safety Report 10396009 (Version 1)
Quarter: 2014Q3

REPORT INFORMATION
  Report Type: Spontaneous
  Country: US (occurrence: None)
  Receive Date: 20140815
  Receipt Date: 20140815
  Transmission Date: 20150326
  Serious: Yes (Other)
  Sender: FDA-Public Use
  Company Number: None

PATIENT
  Age: 44 Year
  Sex: Female
  Weight: 66.23 kg

DRUGS (1)
  1. BREO ELLIPTA [Suspect]
     Active Substance: FLUTICASONE FUROATE\VILANTEROL TRIFENATATE
     Indication: CHRONIC OBSTRUCTIVE PULMONARY DISEASE
     Dosage: 1 PUFF 2 TIMES A DAY  TWICE DAILY TAKEN BY MOUTH
     Route: 048
     Dates: start: 20140808, end: 20140810

REACTIONS (4)
  - Body temperature increased [None]
  - Nausea [None]
  - Headache [None]
  - Hypersensitivity [None]

NARRATIVE: CASE EVENT DATE: 20140810
